FAERS Safety Report 16906628 (Version 2)
Quarter: 2019Q4

REPORT INFORMATION
  Report Type: Spontaneous
  Country: US (occurrence: US)
  Receive Date: 20191011
  Receipt Date: 20191101
  Transmission Date: 20200122
  Serious: Yes (Other)
  Sender: FDA-Public Use
  Company Number: US-ROCHE-2436487

PATIENT
  Age: 96 Year
  Sex: Female

DRUGS (6)
  1. AVASTIN [Suspect]
     Active Substance: BEVACIZUMAB
     Indication: GLAUCOMA
  2. LUCENTIS [Suspect]
     Active Substance: RANIBIZUMAB
     Indication: AGE-RELATED MACULAR DEGENERATION
     Dosage: (19 DOSE)RIGHT EYE (OD) GIVEN EVERY 2 TO 4 WEEKS
     Route: 050
  3. AVASTIN [Suspect]
     Active Substance: BEVACIZUMAB
     Indication: AGE-RELATED MACULAR DEGENERATION
     Dosage: 54 DOSE
     Route: 050
  4. LUCENTIS [Suspect]
     Active Substance: RANIBIZUMAB
     Indication: GLAUCOMA
  5. EYLEA [Suspect]
     Active Substance: AFLIBERCEPT
     Indication: GLAUCOMA
  6. EYLEA [Suspect]
     Active Substance: AFLIBERCEPT
     Indication: AGE-RELATED MACULAR DEGENERATION
     Dosage: 2 TO 4 MG
     Route: 050

REACTIONS (5)
  - Off label use [Unknown]
  - Blood creatinine increased [Unknown]
  - Focal segmental glomerulosclerosis [Unknown]
  - Proteinuria [Unknown]
  - Intentional product use issue [Unknown]
